FAERS Safety Report 8210775-1 (Version None)
Quarter: 2012Q1

REPORT INFORMATION
  Report Type: 
  Country: None (occurrence: None)
  Receive Date: 20120315
  Receipt Date: 20120312
  Transmission Date: 20120608
  Serious: No
  Sender: FDA-Public Use
  Company Number: US-BIOGENIDEC-2011BI048826

PATIENT
  Age: 48 Year
  Sex: Female

DRUGS (1)
  1. TYSABRI [Suspect]
     Indication: MULTIPLE SCLEROSIS
     Route: 042
     Dates: start: 20110712, end: 20120127

REACTIONS (14)
  - VISION BLURRED [None]
  - DEPRESSION [None]
  - DISORIENTATION [None]
  - DIZZINESS [None]
  - CONSTIPATION [None]
  - DECREASED APPETITE [None]
  - OEDEMA PERIPHERAL [None]
  - APHASIA [None]
  - FATIGUE [None]
  - HEADACHE [None]
  - ABDOMINAL DISTENSION [None]
  - AMNESIA [None]
  - SPEECH DISORDER [None]
  - ARTHRALGIA [None]
